FAERS Safety Report 5336645-4 (Version None)
Quarter: 2007Q2

REPORT INFORMATION
  Report Type: 
  Country: None (occurrence: None)
  Receive Date: 20070529
  Receipt Date: 20070521
  Transmission Date: 20071010
  Serious: Yes (Hospitalization)
  Sender: FDA-Public Use
  Company Number: CZ-AVENTIS-200713264GDDC

PATIENT
  Age: 62 Year
  Sex: Male

DRUGS (10)
  1. ARAVA [Suspect]
     Indication: RHEUMATOID ARTHRITIS
     Dates: start: 20060609
  2. ARAVA [Suspect]
  3. METHOTREXATE [Concomitant]
     Dosage: DOSE QUANTITY: 12.5
     Dates: start: 20060609, end: 20060918
  4. METHOTREXATE [Concomitant]
     Dates: start: 20060918
  5. MEDROL [Concomitant]
     Route: 048
  6. HELICID                            /00661201/ [Concomitant]
     Indication: GASTRITIS
     Route: 048
  7. SORTIS                             /01326101/ [Concomitant]
     Indication: HYPERCHOLESTEROLAEMIA
     Route: 048
  8. POTASSIUM CHLORIDE [Concomitant]
     Dosage: DOSE QUANTITY: 1
     Route: 048
  9. VIGANTOL                           /00318501/ [Concomitant]
     Dosage: DOSE: 1 DROP
     Route: 048
  10. CALCIUM EFFERVESCENT [Concomitant]
     Route: 048

REACTIONS (8)
  - ANAEMIA MEGALOBLASTIC [None]
  - ATRIAL FIBRILLATION [None]
  - CARDIAC FAILURE [None]
  - CIRCULATORY COLLAPSE [None]
  - DYSPNOEA [None]
  - INFECTION [None]
  - PULMONARY OEDEMA [None]
  - SYNCOPE [None]
